FAERS Safety Report 10067272 (Version 2)
Quarter: 2014Q2

REPORT INFORMATION
  Report Type: Spontaneous
  Country: CH (occurrence: CH)
  Receive Date: 20140409
  Receipt Date: 20140523
  Transmission Date: 20141212
  Serious: Yes (Hospitalization)
  Sender: FDA-Public Use
  Company Number: CH-ROCHE-1380226

PATIENT
  Age: 84 Year
  Sex: Male

DRUGS (2)
  1. MABTHERA [Suspect]
     Indication: MANTLE CELL LYMPHOMA
     Dosage: 3 CYCLES
     Route: 042
     Dates: start: 20131120, end: 20140120
  2. BENDAMUSTINE [Suspect]
     Indication: MANTLE CELL LYMPHOMA
     Dosage: 3 CYCLES
     Route: 042
     Dates: start: 20131120, end: 20140121

REACTIONS (1)
  - Interstitial lung disease [Recovered/Resolved]
